FAERS Safety Report 17898438 (Version 1)
Quarter: 2020Q2

REPORT INFORMATION
  Report Type: Spontaneous
  Country: US (occurrence: US)
  Receive Date: 20200615
  Receipt Date: 20200615
  Transmission Date: 20200714
  Serious: Yes (Hospitalization, Other)
  Sender: FDA-Public Use
  Company Number: NVSC2020US154882

PATIENT
  Age: 40 Year
  Sex: Female
  Weight: 57.15 kg

DRUGS (3)
  1. MYCOBUTIN [Suspect]
     Active Substance: RIFABUTIN
     Indication: MYCOBACTERIAL INFECTION
     Dosage: 150 MG, QD, NDC NUMBER 0013-5301-17
     Route: 048
     Dates: start: 2019
  2. RIFAMPIN. [Suspect]
     Active Substance: RIFAMPIN
     Indication: PRODUCT USED FOR UNKNOWN INDICATION
     Dosage: UNK, BID
     Route: 065
  3. ZYVOX [Suspect]
     Active Substance: LINEZOLID
     Indication: PRODUCT USED FOR UNKNOWN INDICATION
     Dosage: 15 ML, ONCE OR TWICE DAILY
     Route: 048

REACTIONS (18)
  - Hepatic failure [Unknown]
  - Vomiting [Unknown]
  - Paralysis [Unknown]
  - Gastrointestinal haemorrhage [Not Recovered/Not Resolved]
  - Atypical mycobacterial lower respiratory tract infection [Unknown]
  - Lung disorder [Unknown]
  - Weight decreased [Unknown]
  - Blood disorder [Unknown]
  - Renal failure [Unknown]
  - Pulmonary mass [Recovered/Resolved with Sequelae]
  - Asthenia [Unknown]
  - Nausea [Unknown]
  - Blindness [Unknown]
  - Pain [Unknown]
  - Dyspnoea [Not Recovered/Not Resolved]
  - Vein rupture [Unknown]
  - Product availability issue [Unknown]
  - Rash [Unknown]

NARRATIVE: CASE EVENT DATE: 201803
